FAERS Safety Report 21879496 (Version 2)
Quarter: 2023Q1

REPORT INFORMATION
  Report Type: Report from Study
  Country: US (occurrence: US)
  Receive Date: 20230118
  Receipt Date: 20230126
  Transmission Date: 20230418
  Serious: Yes (Hospitalization, Other)
  Sender: FDA-Public Use
  Company Number: US-GILEAD-2023-0612953

PATIENT
  Sex: Male
  Weight: 95.5 kg

DRUGS (35)
  1. SOFOSBUVIR\VELPATASVIR [Suspect]
     Active Substance: SOFOSBUVIR\VELPATASVIR
     Indication: Hepatitis C
     Dosage: 400/100 MG, QD
     Route: 048
     Dates: start: 20171122, end: 20180216
  2. LEVOTHYROXINE [Concomitant]
     Active Substance: LEVOTHYROXINE
  3. ROSUVASTATIN [Concomitant]
     Active Substance: ROSUVASTATIN
  4. ZOPICLONE [Concomitant]
     Active Substance: ZOPICLONE
  5. VITAMIN D NOS [Concomitant]
     Active Substance: VITAMIN D NOS
  6. CALCIUM [Concomitant]
     Active Substance: CALCIUM
  7. ACETAMINOPHEN [Concomitant]
     Active Substance: ACETAMINOPHEN
  8. SENNALAX [SENNA SPP. EXTRACT] [Concomitant]
  9. CYCLOSPORINE [Concomitant]
     Active Substance: CYCLOSPORINE
  10. PROGRAF [Concomitant]
     Active Substance: TACROLIMUS
  11. LANTUS [Concomitant]
     Active Substance: INSULIN GLARGINE
  12. METOPROLOL [Concomitant]
     Active Substance: METOPROLOL
  13. NYSTATIN [Concomitant]
     Active Substance: NYSTATIN
  14. PREDNISONE [Concomitant]
     Active Substance: PREDNISONE
  15. VALGANCICLOVIR [Concomitant]
     Active Substance: VALGANCICLOVIR
  16. SEPTRA [Concomitant]
     Active Substance: SULFAMETHOXAZOLE\TRIMETHOPRIM
  17. HYDROMORPHONE [Concomitant]
     Active Substance: HYDROMORPHONE
  18. POLYETHYLENE GLYCOL, UNSPECIFIED [Concomitant]
     Active Substance: POLYETHYLENE GLYCOL, UNSPECIFIED
  19. ALENDRONATE [Concomitant]
     Active Substance: ALENDRONATE SODIUM
  20. FERROUS GLUCONATE [Concomitant]
     Active Substance: FERROUS GLUCONATE
  21. CIPROFLOXACIN [Concomitant]
     Active Substance: CIPROFLOXACIN
  22. FUROSEMIDE [Concomitant]
     Active Substance: FUROSEMIDE
  23. CETIRIZINE HYDROCHLORIDE [Concomitant]
     Active Substance: CETIRIZINE HYDROCHLORIDE
  24. DOCUSATE SODIUM [Concomitant]
     Active Substance: DOCUSATE SODIUM
  25. HEPARIN [Concomitant]
     Active Substance: HEPARIN SODIUM
  26. DIPHENHYDRAMINE [Concomitant]
     Active Substance: DIPHENHYDRAMINE
  27. MINERAL OIL [Concomitant]
     Active Substance: MINERAL OIL
  28. PANTOPRAZOLE SODIUM [Concomitant]
     Active Substance: PANTOPRAZOLE SODIUM
  29. CICLESONIDE [Concomitant]
     Active Substance: CICLESONIDE
  30. MYFORTIC [Concomitant]
     Active Substance: MYCOPHENOLATE SODIUM
  31. TAMIFLU [Concomitant]
     Active Substance: OSELTAMIVIR PHOSPHATE
     Dosage: UNK
  32. AMPICILLIN [Concomitant]
     Active Substance: AMPICILLIN
  33. CEFTRIAXONE [Concomitant]
     Active Substance: CEFTRIAXONE
  34. CASPOFUNGIN [Concomitant]
     Active Substance: CASPOFUNGIN
     Dosage: UNK
  35. GRANULOCYTE COLONY-STIMULATING FACTOR NOS [Concomitant]
     Active Substance: GRANULOCYTE COLONY-STIMULATING FACTOR NOS
     Dosage: 300 MG/D  X 3 DAYS

REACTIONS (3)
  - Candida pneumonia [Recovered/Resolved]
  - Febrile neutropenia [Recovered/Resolved]
  - Meningitis [Unknown]

NARRATIVE: CASE EVENT DATE: 20171214
